FAERS Safety Report 5530903-6 (Version None)
Quarter: 2007Q4

REPORT INFORMATION
  Report Type: 
  Country: None (occurrence: None)
  Receive Date: 20071130
  Receipt Date: 20071126
  Transmission Date: 20080405
  Serious: Yes (Hospitalization)
  Sender: FDA-Public Use
  Company Number: FR-ASTRAZENECA-2007CG01682

PATIENT
  Age: 55 Year
  Sex: Male

DRUGS (5)
  1. CRESTOR [Suspect]
     Indication: DYSLIPIDAEMIA
     Route: 048
     Dates: start: 20070201, end: 20071009
  2. PRAVASTATIN [Concomitant]
     Route: 048
  3. TAHOR [Concomitant]
     Route: 048
     Dates: end: 20070201
  4. EZETROL [Concomitant]
     Route: 048
  5. LEVOTHYROXINE SODIUM [Concomitant]

REACTIONS (2)
  - RENAL FAILURE CHRONIC [None]
  - RHABDOMYOLYSIS [None]
